FAERS Safety Report 10618669 (Version 2)
Quarter: 2015Q1

REPORT INFORMATION
  Report Type: Report from Study
  Country: BR (occurrence: BR)
  Receive Date: 20141202
  Receipt Date: 20150205
  Transmission Date: 20150720
  Serious: Yes (Hospitalization, Other)
  Sender: FDA-Public Use
  Company Number: PHHY2014BR156886

PATIENT
  Sex: Female

DRUGS (1)
  1. EXELON [Suspect]
     Active Substance: RIVASTIGMINE TARTRATE
     Indication: DEMENTIA ALZHEIMER^S TYPE
     Dosage: UNK
     Route: 065
     Dates: start: 201406

REACTIONS (6)
  - Urinary tract infection [Unknown]
  - Dementia Alzheimer^s type [Recovering/Resolving]
  - Lung infection [Recovering/Resolving]
  - Femur fracture [Recovering/Resolving]
  - Aggression [Recovering/Resolving]
  - Pyrexia [Recovering/Resolving]
